FAERS Safety Report 6256073-7 (Version None)
Quarter: 2009Q2

REPORT INFORMATION
  Report Type: 
  Country: None (occurrence: None)
  Receive Date: 20090630
  Receipt Date: 20090630
  Transmission Date: 20091009
  Serious: Yes (Other)
  Sender: FDA-Public Use
  Company Number: None

PATIENT
  Age: 23 Year
  Sex: Female
  Weight: 55.7924 kg

DRUGS (1)
  1. AMPHETAMINE MIXED ER CAPS 30 MG TEVA [Suspect]
     Indication: ATTENTION DEFICIT/HYPERACTIVITY DISORDER
     Dosage: 60MG 1X DAILY PO
     Route: 048
     Dates: start: 20090516, end: 20090524

REACTIONS (10)
  - ACCIDENTAL EXPOSURE [None]
  - ANXIETY [None]
  - DARK CIRCLES UNDER EYES [None]
  - DRUG INEFFECTIVE [None]
  - EATING DISORDER [None]
  - INSOMNIA [None]
  - IRRITABILITY [None]
  - MALAISE [None]
  - NAUSEA [None]
  - PRODUCT SUBSTITUTION ISSUE [None]
